FAERS Safety Report 6385297-3 (Version None)
Quarter: 2009Q4

REPORT INFORMATION
  Report Type: 
  Country: None (occurrence: None)
  Receive Date: 20091002
  Receipt Date: 20080819
  Transmission Date: 20100525
  Serious: No
  Sender: FDA-Public Use
  Company Number: US-ASTRAZENECA-2008UW17071

PATIENT
  Age: 89 Year
  Sex: Female
  Weight: 48.1 kg

DRUGS (3)
  1. ARIMIDEX [Suspect]
     Indication: BREAST CANCER
     Dosage: 1 MG
     Route: 048
     Dates: start: 19970101
  2. ALDACTONE [Concomitant]
  3. ASPIRIN [Concomitant]

REACTIONS (2)
  - BALANCE DISORDER [None]
  - VISUAL ACUITY REDUCED [None]
